FAERS Safety Report 11231343 (Version 1)
Quarter: 2015Q2

REPORT INFORMATION
  Report Type: Spontaneous
  Country: US (occurrence: None)
  Receive Date: 20150616
  Receipt Date: 20150616
  Transmission Date: 20150821
  Serious: Yes (Other)
  Sender: FDA-Public Use
  Company Number: USW201503-000073

PATIENT
  Age: 79 Year
  Sex: Female

DRUGS (1)
  1. APOKYN [Suspect]
     Active Substance: APOMORPHINE HYDROCHLORIDE
     Indication: MOBILITY DECREASED
     Dosage: SITE: ABDOMEN
     Route: 058
     Dates: start: 20150303, end: 20150316

REACTIONS (1)
  - Constipation [None]

NARRATIVE: CASE EVENT DATE: 20150311
